FAERS Safety Report 8616831-8 (Version None)
Quarter: 2012Q3

REPORT INFORMATION
  Report Type: 
  Country: None (occurrence: None)
  Receive Date: 20120823
  Receipt Date: 20120808
  Transmission Date: 20120928
  Serious: No
  Sender: FDA-Public Use
  Company Number: US-009507513-1208USA003885

PATIENT

DRUGS (9)
  1. FLOMAX [Concomitant]
  2. NASONEX [Concomitant]
  3. AVODART [Concomitant]
  4. JANUVIA [Suspect]
     Indication: TYPE 2 DIABETES MELLITUS
     Dosage: 100 MG, QD
     Route: 048
     Dates: start: 20120803
  5. GLYBURIDE [Concomitant]
  6. LISINOPRIL [Concomitant]
  7. METFORMIN HCL [Concomitant]
  8. ACETAMINOPHEN [Concomitant]
  9. LIPITOR [Concomitant]

REACTIONS (1)
  - RASH [None]
